FAERS Safety Report 5672909-2 (Version None)
Quarter: 2008Q1

REPORT INFORMATION
  Report Type: 
  Country: None (occurrence: None)
  Receive Date: 20080319
  Receipt Date: 20071130
  Transmission Date: 20080703
  Serious: No
  Sender: FDA-Public Use
  Company Number: US-ASTRAZENECA-2007UW27423

PATIENT
  Age: 74 Year
  Sex: Male
  Weight: 81.6 kg

DRUGS (5)
  1. SYMBICORT [Suspect]
     Indication: LUNG DISORDER
     Dosage: 80/4.5 MCG TWO BUFFS BID
     Route: 055
     Dates: start: 20071101
  2. DILACOR XR [Concomitant]
  3. VYTORIN [Concomitant]
  4. ASPIRIN [Concomitant]
  5. FISH OIL [Concomitant]

REACTIONS (2)
  - DRY THROAT [None]
  - DYSPHONIA [None]
